FAERS Safety Report 5695561-9 (Version None)
Quarter: 2008Q2

REPORT INFORMATION
  Report Type: 
  Country: None (occurrence: None)
  Receive Date: 20080407
  Receipt Date: 20080327
  Transmission Date: 20081010
  Serious: Yes (Other)
  Sender: FDA-Public Use
  Company Number: US-JNJFOC-20080306685

PATIENT
  Age: 55 Year
  Sex: Female
  Weight: 58.97 kg

DRUGS (3)
  1. IMODIUM A-D CREAMY MINT [Suspect]
     Route: 048
  2. IMODIUM A-D CREAMY MINT [Suspect]
     Indication: DIARRHOEA
     Dosage: 2-4 MG TWO TO FOUR TIMES A DAY AS NECESSARY
     Route: 048
  3. UNSPECIFIED PAIN MEDICATION [Concomitant]
     Indication: PAIN

REACTIONS (2)
  - DRUG INEFFECTIVE [None]
  - HAEMATOCHEZIA [None]
